FAERS Safety Report 9156424 (Version 1)
Quarter: 2013Q1

REPORT INFORMATION
  Report Type: Spontaneous
  Country: US (occurrence: None)
  Receive Date: 20130308
  Receipt Date: 20130308
  Transmission Date: 20140127
  Serious: Yes (Other)
  Sender: FDA-Public Use
  Company Number: None

PATIENT
  Age: 44 Year
  Sex: Female
  Weight: 62.6 kg

DRUGS (1)
  1. CYMBALTA 60MG ELI LILLY [Suspect]
     Indication: DEPRESSION
     Dosage: 60 MG ONCE DAILY PO
     Route: 048

REACTIONS (4)
  - Withdrawal syndrome [None]
  - Hypoaesthesia [None]
  - Paraesthesia [None]
  - Vertigo [None]
